FAERS Safety Report 4692936-1 (Version None)
Quarter: 2005Q2

REPORT INFORMATION
  Report Type: 
  Country: None (occurrence: None)
  Receive Date: 20050615
  Receipt Date: 20050606
  Transmission Date: 20051028
  Serious: Yes (Hospitalization)
  Sender: FDA-Public Use
  Company Number: 2005-06-0386

PATIENT
  Sex: Female

DRUGS (1)
  1. ALBUTEROL SULFATE AUTOHALER [Suspect]
     Dosage: ORAL AER INH
     Route: 048

REACTIONS (2)
  - DEVICE FAILURE [None]
  - PHARMACEUTICAL PRODUCT COMPLAINT [None]
